FAERS Safety Report 14836343 (Version 1)
Quarter: 2018Q2

REPORT INFORMATION
  Report Type: Spontaneous
  Country: US (occurrence: US)
  Receive Date: 20180413
  Receipt Date: 20180413
  Transmission Date: 20180711
  Serious: No
  Sender: FDA-Public Use
  Company Number: None

PATIENT
  Age: 58 Year
  Sex: Female
  Weight: 44.55 kg

DRUGS (4)
  1. AMIKACIN. [Concomitant]
     Active Substance: AMIKACIN
     Dates: start: 20180223
  2. TIGECYCLINE. [Concomitant]
     Active Substance: TIGECYCLINE
     Dates: start: 20180223, end: 20180404
  3. IMIPENEM [Concomitant]
     Active Substance: IMIPENEM
     Dates: start: 20180404
  4. CLOFAZIMINE [Suspect]
     Active Substance: CLOFAZIMINE
     Indication: LUNG INFECTION
     Route: 048
     Dates: start: 20180407, end: 20180407

REACTIONS (2)
  - Peripheral swelling [None]
  - Tachycardia [None]

NARRATIVE: CASE EVENT DATE: 20180407
